FAERS Safety Report 13528526 (Version 1)
Quarter: 2017Q2

REPORT INFORMATION
  Report Type: Spontaneous
  Country: US (occurrence: US)
  Receive Date: 20170509
  Receipt Date: 20170509
  Transmission Date: 20170830
  Serious: Yes (Other)
  Sender: FDA-Public Use
  Company Number: US-PFIZER INC-2017199686

PATIENT
  Sex: Female

DRUGS (1)
  1. XELJANZ XR [Suspect]
     Active Substance: TOFACITINIB CITRATE
     Dosage: 11 MG, DAILY
     Dates: start: 201701

REACTIONS (27)
  - Joint swelling [Unknown]
  - Blood pressure increased [Unknown]
  - Raynaud^s phenomenon [Unknown]
  - Ear pain [Unknown]
  - Dyspnoea [Unknown]
  - Polydipsia [Unknown]
  - Mobility decreased [Unknown]
  - Contusion [Unknown]
  - Frustration tolerance decreased [Unknown]
  - Arthralgia [Unknown]
  - Dysuria [Unknown]
  - Loss of personal independence in daily activities [Unknown]
  - Pruritus [Unknown]
  - Fatigue [Unknown]
  - Dry skin [Unknown]
  - Gait disturbance [Unknown]
  - Musculoskeletal stiffness [Unknown]
  - Asthenia [Unknown]
  - Dysgeusia [Unknown]
  - Dry mouth [Unknown]
  - Dyspepsia [Unknown]
  - Rash [Unknown]
  - Cough [Unknown]
  - Mood swings [Unknown]
  - Weight increased [Unknown]
  - Deafness [Unknown]
  - Anxiety [Unknown]
